FAERS Safety Report 4314044-1 (Version None)
Quarter: 2004Q1

REPORT INFORMATION
  Report Type: 
  Country: None (occurrence: None)
  Receive Date: 20040305
  Receipt Date: 20040107
  Transmission Date: 20041129
  Serious: No
  Sender: FDA-Public Use
  Company Number: 2004UW00280

PATIENT

DRUGS (1)
  1. CRESTOR [Suspect]
     Dosage: 10 MG

REACTIONS (1)
  - HEPATITIS [None]
